FAERS Safety Report 10252074 (Version 18)
Quarter: 2017Q4

REPORT INFORMATION
  Report Type: Report from Study
  Country: CA (occurrence: CA)
  Receive Date: 20140623
  Receipt Date: 20171010
  Transmission Date: 20180320
  Serious: Yes (Other)
  Sender: FDA-Public Use
  Company Number: PHHY2014CA060474

PATIENT
  Age: 60 Year
  Sex: Female

DRUGS (2)
  1. ZOMETA [Suspect]
     Active Substance: ZOLEDRONIC ACID
     Indication: PLASMA CELL MYELOMA
     Dosage: 4 MG, EVERY 4 WEEKS
     Route: 042
     Dates: start: 20120801
  2. ZOMETA [Suspect]
     Active Substance: ZOLEDRONIC ACID
     Dosage: 4 MG, Q3MO (EVERY 3 MONTHS)
     Route: 042

REACTIONS (21)
  - Herpes zoster [Unknown]
  - Infusion site haemorrhage [Unknown]
  - Abdominal discomfort [Unknown]
  - Pruritus [Unknown]
  - Pain [Unknown]
  - Facial pain [Unknown]
  - Malaise [Unknown]
  - Rash [Unknown]
  - Erythema [Unknown]
  - Plasma cell myeloma recurrent [Unknown]
  - Feeling abnormal [Unknown]
  - Swelling face [Unknown]
  - Pneumonia [Unknown]
  - Blood pressure systolic increased [Unknown]
  - Cognitive disorder [Unknown]
  - Oropharyngeal pain [Unknown]
  - Bone pain [Unknown]
  - Nasopharyngitis [Unknown]
  - Skin burning sensation [Unknown]
  - Tooth disorder [Recovered/Resolved]
  - Influenza like illness [Unknown]

NARRATIVE: CASE EVENT DATE: 20141202
